FAERS Safety Report 8138698-7 (Version None)
Quarter: 2012Q1

REPORT INFORMATION
  Report Type: 
  Country: None (occurrence: None)
  Receive Date: 20120213
  Receipt Date: 20120130
  Transmission Date: 20120608
  Serious: Yes (Hospitalization, Other)
  Sender: FDA-Public Use
  Company Number: NSR_00488-2012

PATIENT
  Age: 56 Year
  Sex: Female

DRUGS (3)
  1. LAMOTRIGINE [Suspect]
     Indication: BIPOLAR I DISORDER
     Dosage: 150 MG, QD
  2. QUETIAPINE FUMARATE [Suspect]
     Indication: DEPRESSIVE SYMPTOM
  3. VALPROIC ACID [Suspect]
     Indication: DEPRESSIVE SYMPTOM

REACTIONS (10)
  - WHITE BLOOD CELL COUNT DECREASED [None]
  - NEUTROPENIA [None]
  - DRUG INTERACTION [None]
  - DRUG HYPERSENSITIVITY [None]
  - STEVENS-JOHNSON SYNDROME [None]
  - SUICIDAL IDEATION [None]
  - PSYCHOMOTOR RETARDATION [None]
  - DEPRESSIVE SYMPTOM [None]
  - UPPER RESPIRATORY TRACT INFECTION [None]
  - THROMBOCYTOPENIA [None]
